FAERS Safety Report 18918196 (Version 2)
Quarter: 2021Q1

REPORT INFORMATION
  Report Type: Spontaneous
  Country: US (occurrence: US)
  Receive Date: 20210219
  Receipt Date: 20210225
  Transmission Date: 20210420
  Serious: Yes (Life-Threatening, Hospitalization, Other)
  Sender: FDA-Public Use
  Company Number: US-PFIZER INC-2021146826

PATIENT
  Age: 62 Year
  Sex: Female
  Weight: 66.7 kg

DRUGS (3)
  1. HEPARIN SODIUM. [Suspect]
     Active Substance: HEPARIN SODIUM
     Dosage: UNK (INFUSION DOSED BETWEEN 16U/KG/HR?26U/KG/HR)
  2. HEPARIN SODIUM. [Suspect]
     Active Substance: HEPARIN SODIUM
     Indication: ANTICOAGULANT THERAPY
     Dosage: 40 IU/KG
     Route: 040
  3. ASPIRIN (E.C.) [Concomitant]
     Active Substance: ASPIRIN
     Dosage: UNK (LOW?DOSE)

REACTIONS (2)
  - Heparin-induced thrombocytopenia [Recovered/Resolved]
  - Thrombosis [Recovered/Resolved]
